FAERS Safety Report 6520786-X (Version None)
Quarter: 2009Q4

REPORT INFORMATION
  Report Type: 
  Country: None (occurrence: None)
  Receive Date: 20091229
  Receipt Date: 20091221
  Transmission Date: 20100525
  Serious: Yes (Death, Other)
  Sender: FDA-Public Use
  Company Number: US-TEVA-218672USA

PATIENT
  Age: 65 Year
  Sex: Female

DRUGS (6)
  1. METHOTREXATE [Suspect]
     Indication: POLYMYOSITIS
     Dosage: INTERMITTENT TREATMENT
  2. METHOTREXATE SOLUTION FOR INJECTION, 25 MG/ML [Concomitant]
  3. AZATHIOPRINE [Suspect]
     Indication: POLYMYOSITIS
     Dosage: INTERMITTENT TREATMENT
  4. PREDNISONE [Suspect]
     Indication: POLYMYOSITIS
     Dosage: VARYING DOSES
  5. PREDNISONE [Suspect]
     Dosage: 6-35MG DAILY
  6. CYCLOPHOSPHAMIDE [Suspect]
     Indication: POLYMYOSITIS
     Dates: start: 20030101, end: 20060101

REACTIONS (2)
  - CENTRAL NERVOUS SYSTEM LYMPHOMA [None]
  - EPSTEIN-BARR VIRUS INFECTION [None]
